FAERS Safety Report 24685468 (Version 1)
Quarter: 2024Q4

REPORT INFORMATION
  Report Type: Spontaneous
  Country: FR (occurrence: FR)
  Receive Date: 20241202
  Receipt Date: 20241202
  Transmission Date: 20250115
  Serious: Yes (Hospitalization)
  Sender: CHEPLAPHARM
  Company Number: None

PATIENT
  Age: 40 Year
  Sex: Male

DRUGS (11)
  1. CLONAZEPAM [Suspect]
     Active Substance: CLONAZEPAM
     Indication: Anxiety
     Dosage: TAKEN FOR 15 DAYS WITH LAST DOSE ON 27/09
  2. COCAINE [Suspect]
     Active Substance: COCAINE
     Indication: Drug withdrawal syndrome
     Dosage: STARTED AT 19, USED DAILY (2 TO 3 GRAMS A DAY) FOR SEVERAL YEARS, INITIALLY BY NASAL ROUTE, THEN ...
     Route: 045
     Dates: start: 2003
  3. ALCOHOL [Suspect]
     Active Substance: ALCOHOL
     Indication: Drug withdrawal syndrome
     Dosage: FIRST CONTACT IN CHILDHOOD WITH FAMILY, THEN AT 14, BINGE DRINKING, ESPECIALLY AT WEEKENDS WITH F...
     Route: 048
  4. NICOTINE\TOBACCO LEAF [Suspect]
     Active Substance: NICOTINE\TOBACCO LEAF
     Dosage: FIRST CIGARETTE AT AGE 8, THEN OCCASIONAL. BECAME A DAILY SMOKER AT 14, FLUCTUATES DEPENDING ON T...
     Route: 055
  5. HEROIN [Concomitant]
     Active Substance: DIAMORPHINE
     Dosage: STARTED AT 22, THEN DAILY, INITIALLY BY NASAL ROUTE AND THEN MAINLY BY INJECTABLE ROUTE
  6. SUBUTEX [Concomitant]
     Active Substance: BUPRENORPHINE HYDROCHLORIDE
  7. PANTOPRAZOLE [Concomitant]
     Active Substance: PANTOPRAZOLE
  8. ACETYLCYSTEINE [Concomitant]
     Active Substance: ACETYLCYSTEINE
  9. ACAMPROSATE [Concomitant]
     Active Substance: ACAMPROSATE
  10. EXFORGE [Concomitant]
     Active Substance: AMLODIPINE BESYLATE\VALSARTAN
  11. METHADONE [Concomitant]
     Active Substance: METHADONE HYDROCHLORIDE

REACTIONS (2)
  - Drug abuse [Recovering/Resolving]
  - Attention deficit hyperactivity disorder [Not Recovered/Not Resolved]

NARRATIVE: CASE EVENT DATE: 20241023
